FAERS Safety Report 6556703-6 (Version None)
Quarter: 2010Q1

REPORT INFORMATION
  Report Type: 
  Country: None (occurrence: None)
  Receive Date: 20100128
  Receipt Date: 20100120
  Transmission Date: 20100710
  Serious: Yes (Death, Hospitalization)
  Sender: FDA-Public Use
  Company Number: IT-ELI_LILLY_AND_COMPANY-IT200909003123

PATIENT
  Sex: Female
  Weight: 71 kg

DRUGS (11)
  1. GEMCITABINE HCL [Suspect]
     Indication: BREAST CANCER METASTATIC
     Dosage: 1075 MG, ON D1,8,15 EVERY 4 WEEKS
     Route: 042
     Dates: start: 20090723, end: 20090911
  2. DOCETAXEL [Suspect]
     Indication: BREAST CANCER METASTATIC
     Dosage: 40 MG, DAY ONE EVERY THREE WEEKS
     Route: 042
     Dates: start: 20090723, end: 20090911
  3. OXYCONTIN [Concomitant]
     Indication: BONE PAIN
     Dosage: UNK, UNK
     Dates: start: 20090713, end: 20090909
  4. VOLTAREN [Concomitant]
     Indication: BONE PAIN
     Dosage: UNK, UNK
     Dates: start: 20090713, end: 20090909
  5. ORAMORPH SR [Concomitant]
     Indication: BONE PAIN
     Dosage: UNK, UNK
     Dates: start: 20090820, end: 20090911
  6. ANTRA [Concomitant]
     Indication: PROPHYLAXIS
     Dosage: UNK, UNK
     Dates: start: 20090820, end: 20090909
  7. ANTRA [Concomitant]
     Dates: start: 20090912, end: 20090923
  8. PHOSPHO LAX [Concomitant]
     Indication: CONSTIPATION
     Dosage: UNK, UNK
     Dates: start: 20090820, end: 20090909
  9. PHOSPHO LAX [Concomitant]
     Dates: start: 20091011, end: 20091011
  10. LASIX [Concomitant]
     Indication: OEDEMA PERIPHERAL
     Dosage: UNK, UNK
     Dates: start: 20090820
  11. LASIX [Concomitant]
     Dates: start: 20090912, end: 20091102

REACTIONS (1)
  - MENINGITIS PNEUMOCOCCAL [None]
